FAERS Safety Report 10711115 (Version 3)
Quarter: 2015Q1

REPORT INFORMATION
  Report Type: Report from Study
  Country: US (occurrence: US)
  Receive Date: 20150114
  Receipt Date: 20150119
  Transmission Date: 20150721
  Serious: Yes (Death, Hospitalization, Other)
  Sender: FDA-Public Use
  Company Number: US-ABBVIE-15K-163-1331733-00

PATIENT
  Age: 80 Year
  Sex: Male
  Weight: 56.3 kg

DRUGS (7)
  1. PREDNISONE. [Concomitant]
     Active Substance: PREDNISONE
     Indication: RHEUMATOID ARTHRITIS
  2. FOLIC ACID. [Concomitant]
     Active Substance: FOLIC ACID
     Indication: VITAMIN SUPPLEMENTATION
  3. CALCIUM [Concomitant]
     Active Substance: CALCIUM
     Indication: MINERAL SUPPLEMENTATION
  4. IRON [Concomitant]
     Active Substance: IRON
     Indication: MINERAL SUPPLEMENTATION
  5. HUMIRA [Suspect]
     Active Substance: ADALIMUMAB
     Indication: RHEUMATOID ARTHRITIS
     Route: 065
     Dates: start: 2009, end: 20150104
  6. AMLODIPINE [Concomitant]
     Active Substance: AMLODIPINE BESYLATE
     Indication: BLOOD PRESSURE
  7. OMEPRAZOLE. [Concomitant]
     Active Substance: OMEPRAZOLE
     Indication: DYSPEPSIA

REACTIONS (12)
  - Renal failure [Fatal]
  - Hypertension [Fatal]
  - Nasopharyngitis [Recovered/Resolved]
  - Cardiac arrest [Fatal]
  - Pulmonary congestion [Fatal]
  - Oral pain [Unknown]
  - Lip and/or oral cavity cancer [Not Recovered/Not Resolved]
  - Seizure [Fatal]
  - Complex partial seizures [Not Recovered/Not Resolved]
  - Chronic kidney disease [Not Recovered/Not Resolved]
  - Pneumonia [Fatal]
  - Coronary artery disease [Fatal]

NARRATIVE: CASE EVENT DATE: 2012
